FAERS Safety Report 9564579 (Version 1)
Quarter: 2013Q3

REPORT INFORMATION
  Report Type: Spontaneous
  Country: US (occurrence: US)
  Receive Date: 20130930
  Receipt Date: 20130930
  Transmission Date: 20140515
  Serious: No
  Sender: FDA-Public Use
  Company Number: US-PFIZER INC-2013278107

PATIENT
  Age: 84 Year
  Sex: Female
  Weight: 82.54 kg

DRUGS (5)
  1. CELEBREX [Suspect]
     Indication: ARTHRITIS
     Dosage: 200 MG, 1X/DAY
     Dates: start: 2012
  2. CELEBREX [Suspect]
     Dosage: 400 MG, 1X/DAY
  3. LORTAB [Suspect]
     Indication: BACK PAIN
     Dosage: ^HALF OF 500MG^, 2X/DAY
  4. NEXIUM [Concomitant]
     Dosage: 40 MG, 1X/DAY
  5. METAMUCIL [Concomitant]

REACTIONS (1)
  - Abdominal pain upper [Unknown]
